FAERS Safety Report 16893555 (Version 1)
Quarter: 2019Q4

REPORT INFORMATION
  Report Type: Spontaneous
  Country: FI (occurrence: FI)
  Receive Date: 20191008
  Receipt Date: 20191008
  Transmission Date: 20200122
  Serious: Yes (Other)
  Sender: FDA-Public Use
  Company Number: FI-ROCHE-2379558

PATIENT
  Age: 77 Year
  Sex: Male

DRUGS (4)
  1. FELODIPIN [Concomitant]
     Active Substance: FELODIPINE
     Indication: HYPERTENSION
  2. DIFLUCAN [Concomitant]
     Active Substance: FLUCONAZOLE
  3. DIOVAN [Concomitant]
     Active Substance: VALSARTAN
     Indication: HYPERTENSION
     Route: 065
     Dates: end: 201907
  4. TECENTRIQ [Suspect]
     Active Substance: ATEZOLIZUMAB
     Indication: LUNG SQUAMOUS CELL CARCINOMA METASTATIC
     Route: 065
     Dates: start: 201811, end: 201904

REACTIONS (3)
  - Lichenoid keratosis [Recovering/Resolving]
  - Lichen planus [Unknown]
  - Fungal infection [Recovering/Resolving]

NARRATIVE: CASE EVENT DATE: 201902
